FAERS Safety Report 23299001 (Version 2)
Quarter: 2024Q1

REPORT INFORMATION
  Report Type: Spontaneous
  Country: JP (occurrence: JP)
  Receive Date: 20231215
  Receipt Date: 20240314
  Transmission Date: 20240409
  Serious: Yes (Life-Threatening, Hospitalization, Disabling, Other)
  Sender: FDA-Public Use
  Company Number: JP-ABBVIE-5535987

PATIENT
  Age: 65 Year
  Sex: Female

DRUGS (12)
  1. HUMIRA [Suspect]
     Active Substance: ADALIMUMAB
     Indication: Rheumatoid arthritis
     Dosage: STRENGTH -40 MG
     Route: 058
     Dates: start: 20120828
  2. HUMIRA [Suspect]
     Active Substance: ADALIMUMAB
     Indication: Rheumatoid arthritis
     Dosage: FORM STRENGTH: 40MG
     Route: 058
     Dates: end: 20230823
  3. PREDNISOLONE [Suspect]
     Active Substance: PREDNISOLONE
     Indication: Rheumatoid arthritis
     Route: 048
     Dates: start: 20111108
  4. PREDNISOLONE [Suspect]
     Active Substance: PREDNISOLONE
     Indication: Rheumatoid arthritis
     Route: 048
  5. LANSOPRAZOLE [Concomitant]
     Active Substance: LANSOPRAZOLE
     Indication: Antacid therapy
     Dosage: 15 MILLIGRAM
     Route: 048
     Dates: start: 20111108, end: 20231214
  6. MINODRONIC ACID [Concomitant]
     Active Substance: MINODRONIC ACID
     Indication: Osteoporosis prophylaxis
     Route: 048
     Dates: start: 20190822, end: 20231209
  7. METHOTREXATE [Suspect]
     Active Substance: METHOTREXATE
     Indication: Rheumatoid arthritis
     Route: 048
     Dates: start: 20111108, end: 20231207
  8. METHOTREXATE [Suspect]
     Active Substance: METHOTREXATE
     Indication: Rheumatoid arthritis
     Route: 048
  9. LOXOPROFEN SODIUM DIHYDRATE [Concomitant]
     Active Substance: LOXOPROFEN SODIUM DIHYDRATE
     Indication: Analgesic therapy
     Dosage: 60 MILLIGRAM
     Route: 048
     Dates: start: 20111108, end: 20231214
  10. TACROLIMUS [Suspect]
     Active Substance: TACROLIMUS
     Indication: Rheumatoid arthritis
     Route: 048
     Dates: start: 20190519, end: 20231209
  11. MIZORIBINE [Suspect]
     Active Substance: MIZORIBINE
     Indication: Rheumatoid arthritis
     Route: 048
     Dates: start: 20130829, end: 20231209
  12. FOLIC ACID [Concomitant]
     Active Substance: FOLIC ACID
     Indication: Vitamin supplementation
     Dosage: 5 MG/WEEK
     Route: 048
     Dates: start: 20111108, end: 20231209

REACTIONS (6)
  - Streptococcal sepsis [Unknown]
  - Pneumonia [Unknown]
  - Eye infection bacterial [Unknown]
  - Herpes zoster [Unknown]
  - Visual impairment [Unknown]
  - Eye paraesthesia [Unknown]

NARRATIVE: CASE EVENT DATE: 20231204
